FAERS Safety Report 9771938 (Version 2)
Quarter: 2014Q1

REPORT INFORMATION
  Report Type: Spontaneous
  Country: US (occurrence: US)
  Receive Date: 20131219
  Receipt Date: 20140127
  Transmission Date: 20141002
  Serious: Yes (Hospitalization)
  Sender: FDA-Public Use
  Company Number: US-INCYTE CORPORATION-2013IN002964

PATIENT
  Age: 83 Year
  Sex: Female
  Weight: 65.31 kg

DRUGS (2)
  1. JAKAFI [Suspect]
     Dosage: 5 MG, BID
     Route: 048
     Dates: start: 20131118, end: 20131209
  2. JAKAFI [Suspect]
     Dosage: 10 MG, BID

REACTIONS (2)
  - Hospitalisation [Recovered/Resolved]
  - Transfusion [Recovered/Resolved]
